FAERS Safety Report 20824016 (Version 1)
Quarter: 2022Q2

REPORT INFORMATION
  Report Type: Spontaneous
  Country: US (occurrence: US)
  Receive Date: 20220513
  Receipt Date: 20220513
  Transmission Date: 20220721
  Serious: No
  Sender: FDA-Public Use
  Company Number: US-GLAXOSMITHKLINE-US2022076168

PATIENT
  Weight: 63.5 kg

DRUGS (1)
  1. ANORO ELLIPTA [Suspect]
     Active Substance: UMECLIDINIUM BROMIDE\VILANTEROL TRIFENATATE
     Indication: Chronic obstructive pulmonary disease
     Dosage: UNK (62.5MCG/25MCG)/ACTUATION UNKNOWN DIRECTIONS
     Dates: start: 201801

REACTIONS (2)
  - Dyspnoea [Not Recovered/Not Resolved]
  - Treatment noncompliance [Unknown]
